FAERS Safety Report 5001427-X (Version None)
Quarter: 2006Q2

REPORT INFORMATION
  Report Type: 
  Country: None (occurrence: None)
  Receive Date: 20060512
  Receipt Date: 20010405
  Transmission Date: 20061013
  Serious: Yes (Death)
  Sender: FDA-Public Use
  Company Number: US-MERCK-01040669

PATIENT
  Age: 83 Year
  Sex: Female
  Weight: 66 kg

DRUGS (6)
  1. VIOXX [Suspect]
     Indication: ARTHRITIS
     Route: 048
     Dates: start: 20000101, end: 20010329
  2. VIOXX [Suspect]
     Route: 048
     Dates: start: 20010330, end: 20010404
  3. VIOXX [Suspect]
     Route: 065
     Dates: start: 20010405
  4. ZESTRIL [Suspect]
     Route: 065
  5. STELAZINE [Concomitant]
     Route: 065
  6. MEVACOR [Concomitant]
     Route: 065

REACTIONS (2)
  - DRUG ADMINISTRATION ERROR [None]
  - MYOCARDIAL INFARCTION [None]
